FAERS Safety Report 9342254 (Version 2)
Quarter: 2013Q2

REPORT INFORMATION
  Report Type: Spontaneous
  Country: JP (occurrence: JP)
  Receive Date: 20130611
  Receipt Date: 20130620
  Transmission Date: 20140414
  Serious: Yes (Death, Other)
  Sender: FDA-Public Use
  Company Number: JP-ROCHE-1231492

PATIENT
  Age: 70 Year
  Sex: Male

DRUGS (6)
  1. CELLCEPT [Suspect]
     Indication: PROPHYLAXIS AGAINST TRANSPLANT REJECTION
     Route: 048
  2. CELLCEPT [Suspect]
     Indication: PROPHYLAXIS AGAINST TRANSPLANT REJECTION
     Dosage: DOSAGE IS UNCERTAIN.
     Route: 048
  3. IRINOTECAN HYDROCHLORIDE [Suspect]
     Indication: GASTRIC CANCER
     Route: 065
  4. TACROLIMUS HYDRATE [Concomitant]
     Indication: PROPHYLAXIS AGAINST TRANSPLANT REJECTION
     Route: 065
  5. TACROLIMUS HYDRATE [Concomitant]
     Indication: PROPHYLAXIS AGAINST TRANSPLANT REJECTION
     Dosage: DOSAGE IS UNCERTAIN.
     Route: 065
  6. PREDNISOLONE [Concomitant]
     Indication: PROPHYLAXIS AGAINST TRANSPLANT REJECTION
     Route: 065

REACTIONS (9)
  - Pancytopenia [Fatal]
  - Necrotising fasciitis [Fatal]
  - Gastric cancer [Unknown]
  - Metastases to liver [Unknown]
  - Bone marrow failure [Unknown]
  - Diarrhoea [Unknown]
  - Pneumonia [Unknown]
  - Blood creatinine increased [Unknown]
  - Hypersensitivity [Unknown]
